FAERS Safety Report 5729757-4 (Version None)
Quarter: 2008Q2

REPORT INFORMATION
  Report Type: 
  Country: None (occurrence: None)
  Receive Date: 20080506
  Receipt Date: 20080410
  Transmission Date: 20081010
  Serious: No
  Sender: FDA-Public Use
  Company Number: US-BOEHRINGER INGELHEIM GMBH, GERMANY-2008-BP-04903BP

PATIENT
  Sex: Female

DRUGS (6)
  1. SPIRIVA [Suspect]
     Indication: EMPHYSEMA
     Route: 055
     Dates: start: 20071101, end: 20080330
  2. SPIRIVA [Suspect]
     Indication: CHRONIC OBSTRUCTIVE PULMONARY DISEASE
  3. FLOVENT [Concomitant]
     Route: 055
  4. PRO-AIR [Concomitant]
     Route: 055
  5. SKELATIN [Concomitant]
     Dates: start: 20080210
  6. CYCLOBENZAPRINE HCL [Concomitant]
     Dates: start: 20080306

REACTIONS (11)
  - BACK PAIN [None]
  - BRONCHITIS [None]
  - CONSTIPATION [None]
  - ERYTHEMA [None]
  - GAIT DISTURBANCE [None]
  - HYPOAESTHESIA [None]
  - JOINT SWELLING [None]
  - MYALGIA [None]
  - MYOFASCIAL PAIN SYNDROME [None]
  - PALPITATIONS [None]
  - PARAESTHESIA [None]
